FAERS Safety Report 25709596 (Version 2)
Quarter: 2025Q3

REPORT INFORMATION
  Report Type: Report from Study
  Country: US (occurrence: US)
  Receive Date: 20250821
  Receipt Date: 20250908
  Transmission Date: 20251021
  Serious: Yes (Other)
  Sender: MALLINCKRODT
  Company Number: US-MALLINCKRODT-MNK202504996

PATIENT
  Age: 62 Year
  Sex: Female

DRUGS (1)
  1. CORTICOTROPIN [Suspect]
     Active Substance: CORTICOTROPIN
     Indication: Punctate keratitis

REACTIONS (9)
  - Musculoskeletal discomfort [Unknown]
  - Migraine [Unknown]
  - Fall [Unknown]
  - Amnesia [Unknown]
  - Arthritis [Unknown]
  - Asthma [Unknown]
  - Concussion [Unknown]
  - Vomiting [Unknown]
  - Asthenia [Unknown]

NARRATIVE: CASE EVENT DATE: 20250727
